FAERS Safety Report 5283393-5 (Version None)
Quarter: 2007Q1

REPORT INFORMATION
  Report Type: 
  Country: None (occurrence: None)
  Receive Date: 20070328
  Receipt Date: 20070328
  Transmission Date: 20070707
  Serious: Yes (Disabling, Other)
  Sender: FDA-Public Use
  Company Number: None

PATIENT
  Age: 53 Year
  Sex: Female
  Weight: 83.9154 kg

DRUGS (2)
  1. CRESTOR [Suspect]
     Indication: BLOOD CHOLESTEROL ABNORMAL
     Dosage: 40MG  1 X DAILY  ORAL
     Route: 048
     Dates: start: 20061210
  2. CRESTOR [Suspect]
     Indication: BLOOD CHOLESTEROL ABNORMAL
     Dosage: 40MG  1 X DAILY  ORAL
     Route: 048
     Dates: start: 20070110

REACTIONS (5)
  - CONDITION AGGRAVATED [None]
  - EAR DISCOMFORT [None]
  - INCORRECT DOSE ADMINISTERED [None]
  - SENSORY DISTURBANCE [None]
  - TINNITUS [None]
